FAERS Safety Report 9174083 (Version 1)
Quarter: 2013Q1

REPORT INFORMATION
  Report Type: Spontaneous
  Country: GB (occurrence: None)
  Receive Date: 20130315
  Receipt Date: 20130315
  Transmission Date: 20140127
  Serious: Yes (Other)
  Sender: FDA-Public Use
  Company Number: 2013-03380

PATIENT
  Age: 51 Year
  Sex: Female

DRUGS (2)
  1. FLUOXETINE HYDROCHLORIDE (UNKNOWN) (FLUOXETINE HYDROCHLORIDE) UNK, UNKUNK [Suspect]
     Indication: ANXIETY
     Dosage: 2 DF, DAILY, DAILY DOSE REDUCED FROM 40MG TO 20MG, ORAL
     Route: 048
     Dates: start: 20121008, end: 20121105
  2. ASPIRIN (ACETYSLAICYLIC ACID) [Concomitant]

REACTIONS (1)
  - Scotoma [None]
